FAERS Safety Report 9408701 (Version 1)
Quarter: 2013Q3

REPORT INFORMATION
  Report Type: Report from Study
  Country: CA (occurrence: CA)
  Receive Date: 20130712
  Receipt Date: 20130712
  Transmission Date: 20140515
  Serious: Yes (Congenital Anomaly, Other)
  Sender: FDA-Public Use
  Company Number: CA-PFIZER INC-2013201261

PATIENT
  Sex: 0

DRUGS (7)
  1. GABAPENTIN [Suspect]
     Indication: PROPHYLAXIS
     Dosage: 1800 MG/DAY
     Route: 064
  2. GABAPENTIN [Suspect]
     Indication: BRAIN ABSCESS
  3. ACENOCOUMAROL [Concomitant]
     Dosage: UNTIL 6 WK POST-LMP
     Route: 064
  4. COTRIMOXAZOLE [Concomitant]
     Dosage: UNK
     Route: 064
  5. HYDROCORTISONE [Concomitant]
     Dosage: UNK
     Route: 064
  6. CEFTRIAXONE [Concomitant]
     Dosage: UNK
     Route: 064
  7. HEPARIN [Concomitant]
     Dosage: THROUGHOUT PREGNANCY
     Route: 064

REACTIONS (5)
  - Maternal exposure during pregnancy [Unknown]
  - Cryptorchism [Unknown]
  - Hypocalcaemia [Unknown]
  - Respiratory rate [Unknown]
  - Tremor [Unknown]
